FAERS Safety Report 24678874 (Version 1)
Quarter: 2024Q4

REPORT INFORMATION
  Report Type: Spontaneous
  Country: US (occurrence: US)
  Receive Date: 20241129
  Receipt Date: 20241129
  Transmission Date: 20250114
  Serious: Yes (Other)
  Sender: BRISTOL-MYERS SQUIBB COMPANY
  Company Number: US-BRISTOL-MYERS SQUIBB COMPANY-2024-185402

PATIENT
  Sex: Male
  Weight: 127.01 kg

DRUGS (2)
  1. ELIQUIS [Suspect]
     Active Substance: APIXABAN
     Indication: Deep vein thrombosis
     Route: 048
  2. ELIQUIS [Suspect]
     Active Substance: APIXABAN
     Indication: Heart rate increased

REACTIONS (6)
  - Spinal disorder [Unknown]
  - Muscle spasms [Unknown]
  - Back pain [Unknown]
  - Weight increased [Unknown]
  - Hypertension [Unknown]
  - Arthralgia [Unknown]
